FAERS Safety Report 18408221 (Version 1)
Quarter: 2020Q4

REPORT INFORMATION
  Report Type: Spontaneous
  Country: JP (occurrence: JP)
  Receive Date: 20201020
  Receipt Date: 20201020
  Transmission Date: 20210114
  Serious: Yes (Hospitalization)
  Sender: FDA-Public Use
  Company Number: JP-FERRINGPH-2020FE07077

PATIENT
  Age: 87 Year
  Sex: Female

DRUGS (2)
  1. DESMOPRESSIN [Suspect]
     Active Substance: DESMOPRESSIN
     Indication: DIABETES INSIPIDUS
     Dosage: UNK
     Route: 065
  2. FLUDROCORTISONE ACETATE. [Suspect]
     Active Substance: FLUDROCORTISONE ACETATE
     Indication: DIABETES INSIPIDUS
     Dosage: UNK
     Route: 065

REACTIONS (3)
  - Contraindicated product prescribed [Unknown]
  - Labelled drug-drug interaction medication error [Unknown]
  - Cardiac failure congestive [Recovered/Resolved]
